FAERS Safety Report 25505895 (Version 3)
Quarter: 2025Q3

REPORT INFORMATION
  Report Type: Report from Study
  Country: CA (occurrence: CA)
  Receive Date: 20250702
  Receipt Date: 20250725
  Transmission Date: 20251021
  Serious: Yes (Death, Hospitalization, Other)
  Sender: HLS THERAPEUTICS
  Company Number: CA-HLS-202501723

PATIENT
  Age: 65 Year
  Sex: Female

DRUGS (1)
  1. CLOZARIL [Suspect]
     Active Substance: CLOZAPINE
     Indication: Product used for unknown indication
     Route: 048
     Dates: start: 20210728, end: 20250628

REACTIONS (2)
  - Illness [Unknown]
  - Death [Fatal]

NARRATIVE: CASE EVENT DATE: 20250717
